FAERS Safety Report 9708278 (Version 1)
Quarter: 2013Q4

REPORT INFORMATION
  Report Type: Spontaneous
  Country: JP (occurrence: JP)
  Receive Date: 20131125
  Receipt Date: 20131125
  Transmission Date: 20140711
  Serious: Yes (Other)
  Sender: FDA-Public Use
  Company Number: JP-BRISTOL-MYERS SQUIBB COMPANY-19820570

PATIENT
  Age: 77 Year
  Sex: Male

DRUGS (12)
  1. METGLUCO [Suspect]
     Indication: DIABETES MELLITUS
     Route: 048
  2. REMINYL [Concomitant]
     Route: 048
  3. TAKEPRON [Concomitant]
  4. ADONA [Concomitant]
  5. METHYCOBAL [Concomitant]
  6. SENNOSIDE [Concomitant]
     Route: 048
  7. MADOPAR [Concomitant]
     Route: 048
  8. PRAMIPEXOLE HCL [Concomitant]
     Route: 048
  9. AMARYL [Concomitant]
     Route: 048
  10. JANUVIA [Concomitant]
     Route: 048
  11. MAGNESIUM OXIDE [Concomitant]
     Route: 048
  12. VESICARE [Concomitant]
     Route: 048

REACTIONS (1)
  - Mental impairment [Not Recovered/Not Resolved]
